FAERS Safety Report 10375970 (Version 1)
Quarter: 2014Q3

REPORT INFORMATION
  Report Type: Spontaneous
  Country: US (occurrence: None)
  Receive Date: 20140731
  Receipt Date: 20140731
  Transmission Date: 20150326
  Serious: Yes (Other)
  Sender: FDA-Public Use
  Company Number: 1713747-2013-00010

PATIENT
  Age: 59 Year
  Sex: Female
  Weight: 86.5 kg

DRUGS (5)
  1. OPTIFLUX DIALYZER [Concomitant]
  2. 0.9% SODIUM CHLORIDE INJECTION [Suspect]
     Active Substance: SODIUM CHLORIDE
     Indication: HAEMODIALYSIS
     Dates: start: 20130508
  3. NATURALYTE [Concomitant]
     Active Substance: ACETIC ACID\SODIUM ACETATE
  4. COMBISET BLOODLINES [Concomitant]
  5. FRESENIUS 2008K2 [Concomitant]

REACTIONS (3)
  - Haemodialysis [None]
  - Dyspnoea [None]
  - Chest pain [None]

NARRATIVE: CASE EVENT DATE: 20130508
